FAERS Safety Report 14157022 (Version 1)
Quarter: 2017Q4

REPORT INFORMATION
  Report Type: Spontaneous
  Country: US (occurrence: US)
  Receive Date: 20171103
  Receipt Date: 20171103
  Transmission Date: 20180321
  Serious: No
  Sender: FDA-Public Use
  Company Number: None

PATIENT
  Age: 64 Year
  Sex: Male
  Weight: 56.7 kg

DRUGS (6)
  1. VITAMIN C [Concomitant]
     Active Substance: ASCORBIC ACID
  2. CENTRUM SILVER [Concomitant]
     Active Substance: MINERALS\VITAMINS
  3. IMBRUVICA [Suspect]
     Active Substance: IBRUTINIB
     Indication: LEUKAEMIA
     Dosage: ?          QUANTITY:2 CAPSULE(S);?
     Route: 048
     Dates: start: 20160829, end: 20170529
  4. FLECAINIDE [Concomitant]
     Active Substance: FLECAINIDE
  5. SUPER B-COMPLEX [Concomitant]
  6. GLUCONATE [Concomitant]
     Active Substance: GLUCONATE

REACTIONS (3)
  - Heart rate irregular [None]
  - Rash [None]
  - Urticaria [None]
